FAERS Safety Report 12999828 (Version 1)
Quarter: 2016Q4

REPORT INFORMATION
  Report Type: Not Available
  Country: JP (occurrence: JP)
  Receive Date: 20161205
  Receipt Date: 20161205
  Transmission Date: 20170207
  Serious: Yes (Hospitalization)
  Sender: FDA-Public Use
  Company Number: JP-AKORN-44909

PATIENT
  Sex: Male

DRUGS (1)
  1. COSOPT [Suspect]
     Active Substance: DORZOLAMIDE HYDROCHLORIDE\TIMOLOL MALEATE

REACTIONS (2)
  - Hospitalisation [Recovered/Resolved]
  - Contraindicated product administered [Unknown]
